FAERS Safety Report 13441983 (Version 3)
Quarter: 2017Q2

REPORT INFORMATION
  Report Type: Spontaneous
  Country: JP (occurrence: JP)
  Receive Date: 20170413
  Receipt Date: 20170525
  Transmission Date: 20170830
  Serious: Yes (Hospitalization, Other)
  Sender: FDA-Public Use
  Company Number: JP-UCBSA-2017013744

PATIENT
  Age: 3 Year
  Sex: Male

DRUGS (1)
  1. XYZAL [Suspect]
     Active Substance: LEVOCETIRIZINE DIHYDROCHLORIDE
     Indication: URTICARIA
     Dosage: 2.5 ML, ONCE DAILY (QD)
     Route: 048
     Dates: start: 20170404, end: 20170404

REACTIONS (26)
  - Generalised erythema [Unknown]
  - Angioedema [Unknown]
  - Depressed level of consciousness [Unknown]
  - Tachypnoea [Unknown]
  - Diarrhoea [Unknown]
  - Use of accessory respiratory muscles [Unknown]
  - Rhinorrhoea [Recovered/Resolved]
  - Cough [Unknown]
  - Dyspnoea [Unknown]
  - Face oedema [Recovered/Resolved]
  - Dysphonia [Unknown]
  - Throat tightness [Unknown]
  - Abdominal pain [Unknown]
  - Peripheral coldness [Recovered/Resolved]
  - Pulse abnormal [Recovered/Resolved]
  - Urticaria [Unknown]
  - Nausea [Recovered/Resolved]
  - Tachycardia [Recovered/Resolved]
  - Wheezing [Unknown]
  - Laryngeal oedema [Unknown]
  - Lip swelling [Unknown]
  - Swollen tongue [Unknown]
  - Anaphylactic reaction [Recovered/Resolved]
  - Cyanosis [Recovered/Resolved]
  - Vomiting [Unknown]
  - Pruritus generalised [Unknown]

NARRATIVE: CASE EVENT DATE: 201704
